FAERS Safety Report 24315292 (Version 3)
Quarter: 2024Q4

REPORT INFORMATION
  Report Type: Spontaneous
  Country: JP (occurrence: JP)
  Receive Date: 20240913
  Receipt Date: 20241112
  Transmission Date: 20250114
  Serious: Yes (Other)
  Sender: CSL BEHRING
  Company Number: JP-BEH-2024178413

PATIENT
  Age: 47 Year
  Sex: Male

DRUGS (3)
  1. HIZENTRA [Suspect]
     Active Substance: HUMAN IMMUNOGLOBULIN G
     Indication: Chronic inflammatory demyelinating polyradiculoneuropathy
     Dosage: 16 G/80 ML, QW
     Route: 058
     Dates: start: 20240819
  2. PRIVIGEN [Suspect]
     Active Substance: HUMAN IMMUNOGLOBULIN G
     Indication: Chronic inflammatory demyelinating polyradiculoneuropathy
     Dosage: UNK
     Route: 042
  3. PRIVIGEN [Suspect]
     Active Substance: HUMAN IMMUNOGLOBULIN G
     Dosage: 25 G
     Route: 042
     Dates: start: 20240906, end: 20240910

REACTIONS (5)
  - Chronic inflammatory demyelinating polyradiculoneuropathy [Recovered/Resolved]
  - Physical deconditioning [Recovered/Resolved]
  - Muscular weakness [Recovered/Resolved]
  - Arrhythmia [Recovered/Resolved]
  - Palpitations [Recovered/Resolved]
